FAERS Safety Report 23363197 (Version 3)
Quarter: 2024Q1

REPORT INFORMATION
  Report Type: Report from Study
  Country: US (occurrence: US)
  Receive Date: 20240103
  Receipt Date: 20240109
  Transmission Date: 20240410
  Serious: Yes (Other)
  Sender: FDA-Public Use
  Company Number: US-BAUSCH-BL-2023-019359

PATIENT
  Age: 77 Year
  Sex: Female
  Weight: 64.014 kg

DRUGS (17)
  1. XIFAXAN [Suspect]
     Active Substance: RIFAXIMIN
     Indication: Hepatic encephalopathy
     Route: 048
  2. LACTULOSE [Concomitant]
     Active Substance: LACTULOSE
     Indication: Hepatic encephalopathy
  3. LACTULOSE [Concomitant]
     Active Substance: LACTULOSE
     Dosage: 20 GRAM/30 ML, 15 ML BY MOUTH TITRATE TO 2-4 BOWEL MOVEMENTS DAILY
     Route: 048
  4. HYDROCODONE [Concomitant]
     Active Substance: HYDROCODONE
     Indication: Abdominal pain upper
  5. SPIRO [Concomitant]
     Indication: Ascites
  6. FUROSEMIDE [Concomitant]
     Active Substance: FUROSEMIDE
     Indication: Ascites
     Route: 048
  7. VITAMIN C [Concomitant]
     Active Substance: ASCORBIC ACID
     Indication: Product used for unknown indication
     Dosage: 1000 IU 3 DAY
  8. VITAMIN E [Concomitant]
     Active Substance: .ALPHA.-TOCOPHEROL
     Indication: Product used for unknown indication
  9. ADVIL [Concomitant]
     Active Substance: IBUPROFEN
     Indication: Product used for unknown indication
  10. MIDODRINE [Concomitant]
     Active Substance: MIDODRINE
     Indication: Hypotension
     Route: 048
  11. LASIX [Concomitant]
     Active Substance: FUROSEMIDE
     Indication: Ascites
     Route: 048
  12. POTASSIUM CHLORIDE [Concomitant]
     Active Substance: POTASSIUM CHLORIDE
     Indication: Product used for unknown indication
     Dosage: EXTENDED RELEASE TABLET
     Route: 048
  13. VITAMIN D3 [Concomitant]
     Active Substance: CHOLECALCIFEROL
     Indication: Product used for unknown indication
     Route: 048
  14. HERBALS\TURMERIC [Concomitant]
     Active Substance: HERBALS\TURMERIC
     Indication: Product used for unknown indication
  15. URSODIOL [Concomitant]
     Active Substance: URSODIOL
     Indication: Product used for unknown indication
     Route: 048
  16. PANTOPRAZOLE [Concomitant]
     Active Substance: PANTOPRAZOLE
     Indication: Product used for unknown indication
     Dosage: DELAYED RELEASE (ENTERIC COATED) TABLET
     Route: 048
  17. PYRIDOSTIGMINE BROMIDE [Concomitant]
     Active Substance: PYRIDOSTIGMINE BROMIDE
     Indication: Product used for unknown indication
     Route: 048

REACTIONS (31)
  - Dementia [Unknown]
  - Hepatic encephalopathy [Unknown]
  - Disease recurrence [Unknown]
  - Fluid retention [Unknown]
  - Dry eye [Unknown]
  - Sputum purulent [Unknown]
  - Nocturia [Unknown]
  - Increased tendency to bruise [Unknown]
  - Polydipsia [Unknown]
  - Seasonal allergy [Unknown]
  - Imaging procedure abnormal [Unknown]
  - Malnutrition [Unknown]
  - Use of accessory respiratory muscles [Unknown]
  - Respiratory fremitus [Unknown]
  - Breath sounds abnormal [Unknown]
  - Hepatomegaly [Unknown]
  - Umbilical hernia [Unknown]
  - Muscle atrophy [Unknown]
  - Spider naevus [Unknown]
  - Liver disorder [Unknown]
  - Oedema [Unknown]
  - Amnesia [Unknown]
  - Palmar erythema [Unknown]
  - Chills [Unknown]
  - Asthenia [Unknown]
  - Cough [Unknown]
  - Diarrhoea [Unknown]
  - Decreased appetite [Unknown]
  - Dizziness [Unknown]
  - Inability to afford medication [Unknown]
  - Insurance issue [Unknown]
